FAERS Safety Report 24831289 (Version 1)
Quarter: 2025Q1

REPORT INFORMATION
  Report Type: Spontaneous
  Country: US (occurrence: US)
  Receive Date: 20250110
  Receipt Date: 20250110
  Transmission Date: 20250408
  Serious: Yes (Death, Hospitalization)
  Sender: BAYER HEALTHCARE LLC
  Company Number: US-BAYER-2025A003202

PATIENT
  Age: 87 Year
  Sex: Male

DRUGS (19)
  1. ASPIRIN [Suspect]
     Active Substance: ASPIRIN
     Route: 048
  2. LORATADINE [Suspect]
     Active Substance: LORATADINE
     Route: 048
  3. DIETARY SUPPLEMENT [Suspect]
     Active Substance: DIETARY SUPPLEMENT
     Route: 048
  4. GLIMEPIRIDE [Suspect]
     Active Substance: GLIMEPIRIDE
  5. DILTIAZEM [Suspect]
     Active Substance: DILTIAZEM
  6. CARVEDILOL [Suspect]
     Active Substance: CARVEDILOL
  7. POTASSIUM [Suspect]
     Active Substance: POTASSIUM
  8. LISINOPRIL [Suspect]
     Active Substance: LISINOPRIL
  9. FUROSEMIDE [Suspect]
     Active Substance: FUROSEMIDE
  10. TAMSULOSIN [Suspect]
     Active Substance: TAMSULOSIN
  11. ACETAZOLAMIDE [Suspect]
     Active Substance: ACETAZOLAMIDE
  12. APIXABAN [Suspect]
     Active Substance: APIXABAN
  13. CINNAMON [Suspect]
     Active Substance: CINNAMON
  14. FAMOTIDINE [Suspect]
     Active Substance: FAMOTIDINE
  15. FERROUS SULFATE [Suspect]
     Active Substance: FERROUS SULFATE
  16. METFORMIN [Suspect]
     Active Substance: METFORMIN HYDROCHLORIDE
  17. FISH OIL [Suspect]
     Active Substance: FISH OIL
  18. ROSUVASTATIN [Suspect]
     Active Substance: ROSUVASTATIN
  19. TRAMADOL [Suspect]
     Active Substance: TRAMADOL

REACTIONS (2)
  - Toxicity to various agents [Fatal]
  - Product administration error [Fatal]
